FAERS Safety Report 5411725-3 (Version None)
Quarter: 2007Q3

REPORT INFORMATION
  Report Type: 
  Country: None (occurrence: None)
  Receive Date: 20070813
  Receipt Date: 20070801
  Transmission Date: 20080115
  Serious: Yes (Hospitalization, Other)
  Sender: FDA-Public Use
  Company Number: PHNR2007AU00879

PATIENT
  Age: 39 Year
  Sex: Male

DRUGS (5)
  1. RITALIN [Suspect]
     Indication: NARCOLEPSY
     Dosage: 60 MG, DAILY IN DIVIDED DOSES
     Route: 048
     Dates: start: 20070318, end: 20070322
  2. ATTENTA [Suspect]
     Dates: end: 20070227
  3. ATTENTA [Suspect]
     Dates: start: 20070301, end: 20070501
  4. ATTENTA [Suspect]
     Dates: start: 20070701
  5. ATTENTA [Suspect]
     Dosage: 10 MG, BID
     Route: 048
     Dates: start: 20070725, end: 20070725

REACTIONS (22)
  - ABDOMINAL DISCOMFORT [None]
  - ABDOMINAL PAIN UPPER [None]
  - ANGIOEDEMA [None]
  - CHEST DISCOMFORT [None]
  - COMPUTERISED TOMOGRAM ABNORMAL [None]
  - DRUG INEFFECTIVE [None]
  - HYPERHIDROSIS [None]
  - INFLAMMATORY BOWEL DISEASE [None]
  - INTESTINAL OBSTRUCTION [None]
  - LAPAROTOMY [None]
  - LIVER FUNCTION TEST ABNORMAL [None]
  - MASS [None]
  - MOTOR NEURONE DISEASE [None]
  - MYALGIA [None]
  - NAUSEA [None]
  - PAIN [None]
  - PALPITATIONS [None]
  - PHARYNGOLARYNGEAL PAIN [None]
  - POLYDIPSIA [None]
  - POLYURIA [None]
  - PYREXIA [None]
  - RECTAL LESION [None]
